FAERS Safety Report 6094209-1 (Version None)
Quarter: 2009Q1

REPORT INFORMATION
  Report Type: 
  Country: None (occurrence: None)
  Receive Date: 20090226
  Receipt Date: 20090213
  Transmission Date: 20090719
  Serious: Yes (Other)
  Sender: FDA-Public Use
  Company Number: PHHY2009FR05400

PATIENT

DRUGS (3)
  1. COTAREG [Suspect]
     Indication: HYPERTENSION
     Dosage: UNK
  2. TAHOR [Concomitant]
  3. KARDEGIC [Concomitant]

REACTIONS (4)
  - FACE OEDEMA [None]
  - HIP SWELLING [None]
  - OEDEMA GENITAL [None]
  - OEDEMA PERIPHERAL [None]
